FAERS Safety Report 9648811 (Version 3)
Quarter: 2013Q4

REPORT INFORMATION
  Report Type: Report from Study
  Country: GB (occurrence: GB)
  Receive Date: 20131028
  Receipt Date: 20131104
  Transmission Date: 20140711
  Serious: Yes (Hospitalization)
  Sender: FDA-Public Use
  Company Number: GB-GLAXOSMITHKLINE-B0936403A

PATIENT
  Age: 75 Year
  Sex: Male
  Weight: 107.4 kg

DRUGS (8)
  1. OFATUMUMAB [Suspect]
     Indication: CHRONIC LYMPHOCYTIC LEUKAEMIA
     Dosage: 300MG CYCLIC
     Route: 042
     Dates: start: 20131009
  2. CHLORAMBUCIL [Suspect]
     Indication: CHRONIC LYMPHOCYTIC LEUKAEMIA
     Dosage: 22MG PER DAY
     Route: 048
     Dates: start: 20131015
  3. PARACETAMOL [Concomitant]
     Indication: PAIN
     Dosage: 1000MG PER DAY
     Route: 048
     Dates: start: 20131009
  4. CHLORPHENIRAMINE [Concomitant]
     Indication: PROPHYLAXIS
     Dosage: 10MG PER DAY
     Route: 042
     Dates: start: 20131009
  5. PREDNISOLONE [Concomitant]
     Route: 042
     Dates: start: 20131009
  6. ALLOPURINOL [Concomitant]
     Indication: PROPHYLAXIS
     Dosage: 300MG PER DAY
     Route: 048
     Dates: start: 20131009
  7. METOCLOPRAMIDE [Concomitant]
     Indication: VOMITING
     Dosage: 10MG AS REQUIRED
     Route: 048
     Dates: start: 20131009
  8. ACICLOVIR [Concomitant]
     Indication: ANTIVIRAL PROPHYLAXIS
     Dosage: 400MG TWICE PER DAY
     Route: 048
     Dates: start: 20131009

REACTIONS (1)
  - Embolism [Not Recovered/Not Resolved]
